FAERS Safety Report 10106906 (Version 2)
Quarter: 2014Q2

REPORT INFORMATION
  Report Type: Other
  Country: US (occurrence: US)
  Receive Date: 20140424
  Receipt Date: 20140611
  Transmission Date: 20141212
  Serious: Yes (Hospitalization, Other)
  Sender: FDA-Public Use
  Company Number: US-GSKPPD-2014GSK001626

PATIENT
  Age: 57 Year
  Sex: Female

DRUGS (6)
  1. AVANDIA [Suspect]
     Indication: DIABETES MELLITUS
     Dosage: AVANDIA WAS NOT LISTED AMONG THE PATIENTS DISCHARGE RECORDS.
     Route: 048
  2. TOPROL [Concomitant]
     Route: 048
  3. ENTERIC COATED ASPIRIN [Concomitant]
     Route: 048
  4. PLAVIX [Concomitant]
     Route: 048
  5. NITROGLYCERIN [Concomitant]
     Route: 060
  6. ALTACE [Concomitant]
     Route: 048

REACTIONS (1)
  - Myocardial infarction [Recovered/Resolved]
